FAERS Safety Report 7729479-4 (Version None)
Quarter: 2011Q3

REPORT INFORMATION
  Report Type: 
  Country: None (occurrence: None)
  Receive Date: 20110906
  Receipt Date: 20110824
  Transmission Date: 20111222
  Serious: Yes (Other)
  Sender: FDA-Public Use
  Company Number: TW-JNJFOC-20110811642

PATIENT

DRUGS (2)
  1. SLEEPING PILL NOS [Suspect]
     Indication: SLEEP DISORDER
     Route: 065
  2. INVEGA [Suspect]
     Indication: SCHIZOPHRENIA
     Route: 048

REACTIONS (3)
  - POLYDIPSIA [None]
  - HYPONATRAEMIA [None]
  - CONVULSION [None]
